FAERS Safety Report 23065524 (Version 1)
Quarter: 2023Q4

REPORT INFORMATION
  Report Type: Spontaneous
  Country: US (occurrence: US)
  Receive Date: 20231013
  Receipt Date: 20231013
  Transmission Date: 20240109
  Serious: Yes (Life-Threatening, Hospitalization)
  Sender: FDA-Public Use
  Company Number: US-PRINSTON PHARMACEUTICAL INC.-2023PRN00509

PATIENT
  Age: 21 Year
  Sex: Female

DRUGS (1)
  1. VENLAFAXINE [Suspect]
     Active Substance: VENLAFAXINE HYDROCHLORIDE
     Indication: Suicide attempt
     Dosage: 14100 MG, EXTENDED-RELEASE
     Route: 048

REACTIONS (10)
  - Suicide attempt [Unknown]
  - Overdose [Recovered/Resolved]
  - Sinus tachycardia [Unknown]
  - Transaminases increased [Unknown]
  - Troponin increased [Unknown]
  - Electrocardiogram QT prolonged [Unknown]
  - Generalised tonic-clonic seizure [Recovered/Resolved]
  - Hypotension [Unknown]
  - Multiple organ dysfunction syndrome [Recovering/Resolving]
  - Cardiogenic shock [Recovering/Resolving]
